FAERS Safety Report 10228965 (Version 1)
Quarter: 2014Q2

REPORT INFORMATION
  Report Type: Spontaneous
  Country: JP (occurrence: JP)
  Receive Date: 20140610
  Receipt Date: 20140610
  Transmission Date: 20141212
  Serious: Yes (Hospitalization)
  Sender: FDA-Public Use
  Company Number: JP-GLAXOSMITHKLINE-B0984181A

PATIENT
  Age: 70 Year
  Sex: Female
  Weight: 34 kg

DRUGS (3)
  1. HYCAMTIN [Suspect]
     Indication: OVARIAN CANCER RECURRENT
     Dosage: 1MGM2 PER DAY
     Route: 042
     Dates: start: 20121210, end: 20130329
  2. CRAVIT [Concomitant]
     Dosage: 30MG PER DAY
     Route: 048
     Dates: start: 20121225, end: 20121230
  3. GRANISETRON [Concomitant]
     Dosage: 1MG PER DAY
     Route: 042
     Dates: start: 20121210

REACTIONS (6)
  - Fatigue [Recovered/Resolved]
  - White blood cell count decreased [Recovered/Resolved]
  - Neutrophil count decreased [Recovered/Resolved]
  - Anaemia [Recovering/Resolving]
  - Platelet count decreased [Recovered/Resolved]
  - Nausea [Recovered/Resolved]
